FAERS Safety Report 15917576 (Version 1)
Quarter: 2019Q1

REPORT INFORMATION
  Report Type: Spontaneous
  Country: FR (occurrence: FR)
  Receive Date: 20190205
  Receipt Date: 20190205
  Transmission Date: 20190417
  Serious: Yes (Death, Other)
  Sender: FDA-Public Use
  Company Number: FR-AUROBINDO-AUR-APL-2019-003608

PATIENT

DRUGS (7)
  1. LINEZOLID ARROW [Suspect]
     Active Substance: LINEZOLID
     Indication: PULMONARY FIBROSIS
     Dosage: 1200 MILLIGRAM, ONCE A DAY
     Route: 048
     Dates: start: 20181009, end: 20181010
  2. PIPERACILLIN AND TAZOBACTAM [Suspect]
     Active Substance: PIPERACILLIN SODIUM\TAZOBACTAM SODIUM
     Indication: PULMONARY FIBROSIS
     Dosage: 12 GRAM, ONCE A DAY
     Route: 042
     Dates: start: 20181009, end: 20181010
  3. GALVUS [Suspect]
     Active Substance: VILDAGLIPTIN
     Indication: TYPE 2 DIABETES MELLITUS
     Dosage: 100 MILLIGRAM, ONCE A DAY
     Route: 048
     Dates: start: 20181004, end: 20181011
  4. SODIUM ALGINATE;SODIUM BICARBONATE [Suspect]
     Active Substance: SODIUM ALGINATE\SODIUM BICARBONATE
     Indication: PRODUCT USED FOR UNKNOWN INDICATION
     Dosage: 3 DOSAGE FORM, ONCE A DAY
     Route: 048
     Dates: start: 20181004, end: 20181012
  5. ORBENINE [Suspect]
     Active Substance: CLOXACILLIN SODIUM
     Indication: PULMONARY FIBROSIS
     Dosage: 12 GRAM, DAILY
     Route: 042
     Dates: start: 20181010, end: 20181011
  6. DOLIPRANE [Suspect]
     Active Substance: ACETAMINOPHEN
     Indication: PRODUCT USED FOR UNKNOWN INDICATION
     Dosage: 1 GRAM, 1 G IN ONE TAKE
     Route: 048
     Dates: start: 20181010, end: 20181010
  7. MORPHINE HYDROCHLORIDE [Suspect]
     Active Substance: MORPHINE HYDROCHLORIDE
     Indication: PRODUCT USED FOR UNKNOWN INDICATION
     Dosage: UNK
     Route: 042
     Dates: start: 20181009, end: 20181012

REACTIONS (1)
  - Hepatitis fulminant [Fatal]

NARRATIVE: CASE EVENT DATE: 20181011
